FAERS Safety Report 11397164 (Version 1)
Quarter: 2015Q3

REPORT INFORMATION
  Report Type: Spontaneous
  Country: US (occurrence: US)
  Receive Date: 20150819
  Receipt Date: 20150819
  Transmission Date: 20151125
  Serious: No
  Sender: FDA-Public Use
  Company Number: US-PFIZER INC-2015274357

PATIENT
  Age: 63 Year
  Sex: Male

DRUGS (1)
  1. CHANTIX [Suspect]
     Active Substance: VARENICLINE TARTRATE
     Indication: SMOKING CESSATION THERAPY
     Dosage: 5 MG, 2X/DAY (ONE IN THE MORNING, ONE IN THE EVENING)
     Route: 048
     Dates: start: 20150810

REACTIONS (2)
  - Prostatic specific antigen increased [Unknown]
  - Blood cholesterol increased [Unknown]
